FAERS Safety Report 19445121 (Version 2)
Quarter: 2025Q3

REPORT INFORMATION
  Report Type: Spontaneous
  Country: EU (occurrence: EU)
  Receive Date: 20210622
  Receipt Date: 20250707
  Transmission Date: 20251021
  Serious: Yes (Hospitalization, Other)
  Sender: AUROBINDO
  Company Number: EU-PFIZER INC-2021627758

PATIENT
  Age: 65 Year
  Sex: Male

DRUGS (5)
  1. VORICONAZOLE [Suspect]
     Active Substance: VORICONAZOLE
     Indication: Fusarium infection
     Dosage: 400 MILLIGRAM, TWO TIMES A DAY (LOADING DOSE)
     Route: 048
  2. VORICONAZOLE [Suspect]
     Active Substance: VORICONAZOLE
     Dosage: 200 MILLIGRAM, TWO TIMES A DAY (MAINTENANCE DOSE)
     Route: 048
  3. OCTENIDINE\PHENOXYETHANOL [Suspect]
     Active Substance: OCTENIDINE\PHENOXYETHANOL
     Indication: Fusarium infection
     Route: 061
  4. COLLAGENASE CLOSTRIDIUM HISTOLYTICUM [Suspect]
     Active Substance: COLLAGENASE CLOSTRIDIUM HISTOLYTICUM
     Indication: Fusarium infection
     Route: 061
  5. PREDNISOLONE [Concomitant]
     Active Substance: PREDNISOLONE
     Indication: Proctitis ulcerative
     Dosage: 20 MILLIGRAM, ONCE A DAY
     Route: 048

REACTIONS (1)
  - Drug ineffective [Unknown]
